FAERS Safety Report 4885777-3 (Version None)
Quarter: 2006Q1

REPORT INFORMATION
  Report Type: 
  Country: None (occurrence: None)
  Receive Date: 20060120
  Receipt Date: 20060111
  Transmission Date: 20060701
  Serious: Yes (Other)
  Sender: FDA-Public Use
  Company Number: DE-BOEHRINGER INGELHEIM PHARMACEUTICALS, INC.-2006-DE-00151GD

PATIENT
  Age: 43 Year
  Sex: Male
  Weight: 81 kg

DRUGS (4)
  1. NEVIRAPINE [Suspect]
     Indication: HIV INFECTION
     Dates: start: 20030701, end: 20031201
  2. ZIDOVUDINE [Suspect]
     Indication: HIV INFECTION
     Dates: start: 20030701, end: 20031201
  3. LAMIVUDINE [Suspect]
     Indication: HIV INFECTION
     Dates: start: 20030701, end: 20031201
  4. ABACAVIR [Suspect]
     Indication: HIV INFECTION
     Dates: start: 20030701, end: 20031201

REACTIONS (9)
  - ASTHENIA [None]
  - DISEASE PROGRESSION [None]
  - DRUG INEFFECTIVE [None]
  - DRUG RESISTANCE [None]
  - GAIT DISTURBANCE [None]
  - LIPODYSTROPHY ACQUIRED [None]
  - MYELOPATHY [None]
  - TREATMENT NONCOMPLIANCE [None]
  - URINARY RETENTION [None]
